FAERS Safety Report 23685064 (Version 1)
Quarter: 2024Q1

REPORT INFORMATION
  Report Type: Spontaneous
  Country: PL (occurrence: PL)
  Receive Date: 20240329
  Receipt Date: 20240329
  Transmission Date: 20240409
  Serious: Yes (Hospitalization, Other)
  Sender: FDA-Public Use
  Company Number: PL-AMGEN-POLSP2024059406

PATIENT
  Age: 64 Year
  Sex: Male

DRUGS (4)
  1. KYPROLIS [Suspect]
     Active Substance: CARFILZOMIB
     Indication: Plasma cell myeloma
     Dosage: UNK
     Route: 065
     Dates: start: 202309
  2. LENALIDOMIDE [Concomitant]
     Active Substance: LENALIDOMIDE
     Indication: Plasma cell myeloma
     Dosage: UNK
     Route: 065
     Dates: start: 202309
  3. DEXAMETHASONE [Concomitant]
     Active Substance: DEXAMETHASONE
     Indication: Plasma cell myeloma
     Dosage: UNK
     Route: 065
     Dates: start: 202309
  4. HYDROXYUREA [Concomitant]
     Active Substance: HYDROXYUREA
     Indication: White blood cell count decreased
     Dosage: 1.0 G/D
     Route: 065
     Dates: start: 2024

REACTIONS (11)
  - Choking [Unknown]
  - Influenza [Unknown]
  - Phaeochromocytoma [Unknown]
  - Anaemia [Unknown]
  - Blood pressure fluctuation [Unknown]
  - Gastrointestinal tract adenoma [Unknown]
  - Gastrointestinal dysplasia [Unknown]
  - Weight decreased [Unknown]
  - Transaminases increased [Unknown]
  - Abdominal pain [Unknown]
  - Cough [Unknown]

NARRATIVE: CASE EVENT DATE: 20230901
